FAERS Safety Report 8283162-8 (Version None)
Quarter: 2012Q2

REPORT INFORMATION
  Report Type: 
  Country: None (occurrence: None)
  Receive Date: 20120413
  Receipt Date: 20120410
  Transmission Date: 20120825
  Serious: Yes (Other)
  Sender: FDA-Public Use
  Company Number: DE-GLAXOSMITHKLINE-D0075057A

PATIENT
  Sex: Female
  Weight: 61 kg

DRUGS (4)
  1. POTIGA [Suspect]
     Indication: PARTIAL SEIZURES
     Route: 048
     Dates: start: 20110901
  2. VALPROATE SODIUM [Concomitant]
     Indication: EPILEPSY
     Dosage: 600MG PER DAY
     Route: 048
  3. CLOBAZAM [Concomitant]
     Indication: EPILEPSY
     Dosage: 20MG PER DAY
     Route: 048
  4. LAMOTRGINE [Concomitant]
     Indication: EPILEPSY
     Dosage: 400MG PER DAY
     Route: 048

REACTIONS (4)
  - DYSARTHRIA [None]
  - COMMUNICATION DISORDER [None]
  - APHASIA [None]
  - SPEECH DISORDER [None]
